FAERS Safety Report 7422651-2 (Version None)
Quarter: 2011Q2

REPORT INFORMATION
  Report Type: 
  Country: None (occurrence: None)
  Receive Date: 20110419
  Receipt Date: 20110407
  Transmission Date: 20111010
  Serious: Yes (Other)
  Sender: FDA-Public Use
  Company Number: CH-CEPHALON-2009011743

PATIENT
  Sex: Female
  Weight: 70 kg

DRUGS (4)
  1. SUPRADYN [Suspect]
  2. PULMEX [Suspect]
  3. PONSTAN [Suspect]
  4. MODASOMIL [Suspect]
     Route: 048
     Dates: start: 20080901

REACTIONS (7)
  - HYPOTENSION [None]
  - DIZZINESS [None]
  - HEADACHE [None]
  - SENSORY LOSS [None]
  - SYNCOPE [None]
  - MOVEMENT DISORDER [None]
  - DRUG INTERACTION [None]
